FAERS Safety Report 8553820 (Version 3)
Quarter: 2012Q4

REPORT INFORMATION
  Report Type: 
  Country: US (occurrence: US)
  Receive Date: 20120509
  Receipt Date: 20120926
  Transmission Date: 20130627
  Serious: No
  Sender: FDA-Public Use
  Company Number: US-PFIZER INC-2012109748

PATIENT
  Age: 90 Year
  Sex: Female

DRUGS (5)
  1. ZYVOX [Suspect]
     Indication: STAPHYLOCOCCAL INFECTION
     Dosage: 600 mg, 2x/day
     Route: 048
     Dates: start: 20120403
  2. KCL [Concomitant]
     Dosage: 20 mEq, 1x/day
     Route: 048
  3. PRAVASTATIN [Concomitant]
     Dosage: 80 mg, 1x/day
     Route: 048
  4. METOPROLOL [Concomitant]
     Dosage: UNK
  5. FUROSEMIDE [Concomitant]
     Dosage: UNK

REACTIONS (3)
  - Malaise [Unknown]
  - Nausea [Recovered/Resolved]
  - Vomiting [Recovered/Resolved]
